FAERS Safety Report 6741497-1 (Version None)
Quarter: 2010Q2

REPORT INFORMATION
  Report Type: 
  Country: None (occurrence: None)
  Receive Date: 20100520
  Receipt Date: 20090416
  Transmission Date: 20101027
  Serious: Yes (Other)
  Sender: FDA-Public Use
  Company Number: 2005058000

PATIENT
  Sex: Female
  Weight: 123 kg

DRUGS (5)
  1. DEPO-PROVERA [Suspect]
     Indication: HORMONE REPLACEMENT THERAPY
     Dates: start: 19800101, end: 19810101
  2. PREMARIN [Suspect]
     Indication: HORMONE REPLACEMENT THERAPY
     Dates: start: 19760101, end: 20020101
  3. GABAPENTIN [Concomitant]
  4. CELEXA [Concomitant]
  5. NEXIUM [Concomitant]

REACTIONS (1)
  - BREAST CANCER [None]
